FAERS Safety Report 4284622-7 (Version None)
Quarter: 2004Q1

REPORT INFORMATION
  Report Type: 
  Country: None (occurrence: None)
  Receive Date: 20040130
  Receipt Date: 20040112
  Transmission Date: 20041129
  Serious: Yes (Hospitalization)
  Sender: FDA-Public Use
  Company Number: DE_031012198

PATIENT
  Age: 76 Year
  Sex: Male

DRUGS (6)
  1. ZYPREXA [Suspect]
     Indication: AFFECTIVE DISORDER
     Dosage: 10 MG/DAY
     Dates: start: 20020401, end: 20030801
  2. LEVODOPA [Concomitant]
  3. PANTOZOL (PANTOPRAZOLE SODIUM) [Concomitant]
  4. LASIX [Concomitant]
  5. STILNOX (ZOLPIDEM) [Concomitant]
  6. LORAZEPAM [Concomitant]

REACTIONS (2)
  - NEUROLEPTIC MALIGNANT SYNDROME [None]
  - RHABDOMYOLYSIS [None]
